FAERS Safety Report 21627728 (Version 1)
Quarter: 2022Q4

REPORT INFORMATION
  Report Type: Report from Study
  Country: CN (occurrence: CN)
  Receive Date: 20221122
  Receipt Date: 20221122
  Transmission Date: 20230113
  Serious: Yes (Death, Other)
  Sender: FDA-Public Use
  Company Number: CN-PFIZER INC-PV202200106738

PATIENT
  Age: 65 Year
  Sex: Female

DRUGS (1)
  1. MEDROL [Suspect]
     Active Substance: METHYLPREDNISOLONE
     Dosage: 20 MG, 2X/DAY

REACTIONS (3)
  - Pneumocystis jirovecii pneumonia [Fatal]
  - Cardiac failure [Unknown]
  - Sepsis [Unknown]
